FAERS Safety Report 7701631-3 (Version None)
Quarter: 2011Q3

REPORT INFORMATION
  Report Type: 
  Country: None (occurrence: None)
  Receive Date: 20110819
  Receipt Date: 20110819
  Transmission Date: 20111222
  Serious: Yes (Other)
  Sender: FDA-Public Use
  Company Number: None

PATIENT

DRUGS (1)
  1. HUMULIN R INSULI [Suspect]

REACTIONS (2)
  - INCORRECT DOSE ADMINISTERED [None]
  - MEDICATION ERROR [None]
